FAERS Safety Report 12907451 (Version 2)
Quarter: 2017Q2

REPORT INFORMATION
  Report Type: Report from Study
  Country: CA (occurrence: CA)
  Receive Date: 20161103
  Receipt Date: 20170620
  Transmission Date: 20170830
  Serious: Yes (Other)
  Sender: FDA-Public Use
  Company Number: PHHY2013CA143590

PATIENT
  Age: 90 Year
  Sex: Female

DRUGS (7)
  1. SANDOSTATIN LAR DEPOT [Suspect]
     Active Substance: OCTREOTIDE ACETATE
     Indication: ACROMEGALY
     Dosage: 20 MG, QMO (EVERY 4 WEEKS)
     Route: 030
     Dates: start: 20121213
  2. HCTZ [Concomitant]
     Active Substance: HYDROCHLOROTHIAZIDE
     Indication: PRODUCT USED FOR UNKNOWN INDICATION
     Dosage: UNK
     Route: 065
  3. SANDOSTATIN LAR DEPOT [Suspect]
     Active Substance: OCTREOTIDE ACETATE
     Dosage: 10 MG, QMO (ONCE A MONTH)
     Route: 030
  4. ZYMAR [Concomitant]
     Active Substance: GATIFLOXACIN
     Indication: GLAUCOMA
     Dosage: 1 DF, QID FOR 7 DAYS
     Route: 057
  5. SANDOSTATIN LAR DEPOT [Suspect]
     Active Substance: OCTREOTIDE ACETATE
     Dosage: 10 MG, TIW (EVERY 3 WEEKS)
     Route: 030
  6. CANDESARTAN. [Concomitant]
     Active Substance: CANDESARTAN
     Indication: PRODUCT USED FOR UNKNOWN INDICATION
     Dosage: UNK
     Route: 065
  7. DUREZOL [Suspect]
     Active Substance: DIFLUPREDNATE
     Indication: GLAUCOMA
     Dosage: 1 DF, UNK, FOR 1 MONTH.
     Route: 057

REACTIONS (14)
  - Hypotension [Unknown]
  - Blood pressure systolic increased [Unknown]
  - Bradycardia [Unknown]
  - Malaise [Unknown]
  - Depression [Unknown]
  - Heart rate irregular [Unknown]
  - Diarrhoea [Unknown]
  - Blood pressure decreased [Unknown]
  - Arthralgia [Unknown]
  - Lung infection [Unknown]
  - Dizziness [Unknown]
  - Inappropriate schedule of drug administration [Unknown]
  - Cough [Recovered/Resolved]
  - Influenza [Recovering/Resolving]

NARRATIVE: CASE EVENT DATE: 201510
